FAERS Safety Report 11348745 (Version 1)
Quarter: 2015Q3

REPORT INFORMATION
  Report Type: Spontaneous
  Country: GB (occurrence: GB)
  Receive Date: 20150806
  Receipt Date: 20150806
  Transmission Date: 20151125
  Serious: Yes (Other)
  Sender: FDA-Public Use
  Company Number: GB-GILEAD-2015-0165605

PATIENT
  Age: 30 Year
  Sex: Male
  Weight: 64 kg

DRUGS (3)
  1. STRIBILD [Suspect]
     Active Substance: COBICISTAT\ELVITEGRAVIR\EMTRICITABINE\TENOFOVIR DISOPROXIL FUMARATE
     Indication: ASYMPTOMATIC HIV INFECTION
     Dosage: 1 DF, UNK
     Route: 048
     Dates: start: 201405
  2. FLUTICASONE [Concomitant]
     Active Substance: FLUTICASONE\FLUTICASONE PROPIONATE
     Indication: PRODUCT USED FOR UNKNOWN INDICATION
     Route: 045
  3. SERETIDE [Concomitant]
     Active Substance: FLUTICASONE FUROATE\SALMETEROL XINAFOATE
     Indication: ASTHMA
     Dosage: LONG-TERM.
     Route: 055

REACTIONS (4)
  - Acne [Recovering/Resolving]
  - Cushing^s syndrome [Recovering/Resolving]
  - Mood altered [Recovering/Resolving]
  - Adrenal suppression [Recovering/Resolving]

NARRATIVE: CASE EVENT DATE: 201410
